FAERS Safety Report 16097299 (Version 4)
Quarter: 2020Q1

REPORT INFORMATION
  Report Type: Report from Study
  Country: US (occurrence: US)
  Receive Date: 20190320
  Receipt Date: 20200206
  Transmission Date: 20200409
  Serious: Yes (Life-Threatening, Hospitalization, Other)
  Sender: FDA-Public Use
  Company Number: US-JNJFOC-20190325214

PATIENT
  Age: 41 Year
  Sex: Female
  Weight: 56.3 kg

DRUGS (45)
  1. GABAPENTIN. [Concomitant]
     Active Substance: GABAPENTIN
  2. MOVIPREP [Concomitant]
     Active Substance: ASCORBIC ACID\POLYETHYLENE GLYCOL 3350\POTASSIUM CHLORIDE\SODIUM ASCORBATE\SODIUM CHLORIDE\SODIUM SULFATE
     Dosage: 100 G- 7.5 G- 2.691 G
     Route: 048
  3. CLARITIN [Concomitant]
     Active Substance: LORATADINE
     Route: 048
  4. DECADRON [Concomitant]
     Active Substance: DEXAMETHASONE
     Route: 048
  5. EMEND (FOSAPREPITANT DIMEGLUMINE) [Concomitant]
     Active Substance: FOSAPREPITANT DIMEGLUMINE
     Route: 042
  6. DEXAMETHASONE. [Concomitant]
     Active Substance: DEXAMETHASONE
  7. OXYCODONE [Concomitant]
     Active Substance: OXYCODONE
  8. OXYCODONE [Concomitant]
     Active Substance: OXYCODONE
     Route: 048
     Dates: start: 20180211
  9. PROCHLORPERAZINE MALEATE. [Concomitant]
     Active Substance: PROCHLORPERAZINE MALEATE
  10. REMICADE [Suspect]
     Active Substance: INFLIXIMAB
     Indication: CROHN^S DISEASE
     Route: 042
  11. REMICADE [Suspect]
     Active Substance: INFLIXIMAB
     Route: 042
     Dates: start: 2015, end: 2017
  12. FISH OIL OMEGA 3 [Suspect]
     Active Substance: FISH OIL
     Indication: PRODUCT USED FOR UNKNOWN INDICATION
     Route: 048
  13. FUROSEMIDE. [Concomitant]
     Active Substance: FUROSEMIDE
  14. NITROFURANTOIN. [Concomitant]
     Active Substance: NITROFURANTOIN
  15. TRAMADOL. [Concomitant]
     Active Substance: TRAMADOL
  16. TYLENOL [Concomitant]
     Active Substance: ACETAMINOPHEN
     Route: 048
  17. ANUCORT-HC [Concomitant]
     Active Substance: HYDROCORTISONE ACETATE
  18. LIDOCAINE. [Concomitant]
     Active Substance: LIDOCAINE
     Route: 061
  19. LORAZEPAM. [Concomitant]
     Active Substance: LORAZEPAM
  20. LYRICA [Concomitant]
     Active Substance: PREGABALIN
  21. OLANZAPINE. [Concomitant]
     Active Substance: OLANZAPINE
  22. OSELTAMIVIR [Concomitant]
     Active Substance: OSELTAMIVIR
  23. ASPRIN [Concomitant]
     Active Substance: ASPIRIN
  24. CIPROFLOXACIN. [Concomitant]
     Active Substance: CIPROFLOXACIN
  25. HYDROCODONE/ACETAMINOPHEN [Concomitant]
     Active Substance: ACETAMINOPHEN\HYDROCODONE
     Dosage: 7.5 MG-325 MG/15 ML
     Route: 048
  26. HYDROMORPHONE [Concomitant]
     Active Substance: HYDROMORPHONE
  27. OXYBUTYNIN CHLORIDE. [Concomitant]
     Active Substance: OXYBUTYNIN CHLORIDE
  28. NEULASTA [Concomitant]
     Active Substance: PEGFILGRASTIM
     Dosage: 6MG/0.6 ML
     Route: 058
  29. ALPRAZOLAM. [Concomitant]
     Active Substance: ALPRAZOLAM
  30. CARAFATE [Concomitant]
     Active Substance: SUCRALFATE
     Dosage: 100 MG/ML
  31. CYCLOBENZAPRINE. [Concomitant]
     Active Substance: CYCLOBENZAPRINE
     Indication: MUSCLE SPASMS
     Route: 048
  32. ESCITALOPRAM [Concomitant]
     Active Substance: ESCITALOPRAM OXALATE
  33. METOCLOPRAMIDE. [Concomitant]
     Active Substance: METOCLOPRAMIDE
  34. OXYCODONE AND ACETAMINOPHEN [Concomitant]
     Active Substance: ACETAMINOPHEN\OXYCODONE HYDROCHLORIDE
     Dosage: 5 MG - 325 MG
     Route: 048
  35. PREDNISONE. [Concomitant]
     Active Substance: PREDNISONE
  36. TYLENOL [Concomitant]
     Active Substance: ACETAMINOPHEN
     Route: 048
  37. CEPHALEXIN                         /00145501/ [Concomitant]
     Active Substance: CEPHALEXIN
  38. NARCAN [Concomitant]
     Active Substance: NALOXONE HYDROCHLORIDE
  39. REMICADE [Suspect]
     Active Substance: INFLIXIMAB
     Route: 042
     Dates: start: 2017, end: 20180215
  40. ALOXI [Concomitant]
     Active Substance: PALONOSETRON HYDROCHLORIDE
     Route: 042
  41. CYMBALTA [Concomitant]
     Active Substance: DULOXETINE HYDROCHLORIDE
     Route: 048
     Dates: start: 20180211
  42. LYRICA [Concomitant]
     Active Substance: PREGABALIN
  43. ONDANSETRON [Concomitant]
     Active Substance: ONDANSETRON
  44. PROCHLORPERAZINE MALEATE. [Concomitant]
     Active Substance: PROCHLORPERAZINE MALEATE
  45. VANCOMYCIN [Concomitant]
     Active Substance: VANCOMYCIN

REACTIONS (10)
  - Caesarean section [Unknown]
  - Anxiety [Unknown]
  - Leiomyosarcoma recurrent [Unknown]
  - Exposure during pregnancy [Recovered/Resolved]
  - Drug ineffective [Recovered/Resolved]
  - Depression [Unknown]
  - Stress [Unknown]
  - Off label use [Unknown]
  - Crohn^s disease [Recovered/Resolved]
  - Product use issue [Unknown]

NARRATIVE: CASE EVENT DATE: 2015
